FAERS Safety Report 5911572-X (Version None)
Quarter: 2008Q4

REPORT INFORMATION
  Report Type: 
  Country: None (occurrence: None)
  Receive Date: 20081003
  Receipt Date: 20080919
  Transmission Date: 20090506
  Serious: Yes (Life-Threatening, Other)
  Sender: FDA-Public Use
  Company Number: 1000001118

PATIENT
  Age: 29 Year
  Sex: Male

DRUGS (5)
  1. ESCITALOPRAM OXALATE [Suspect]
     Dosage: (ONCE), ORAL
     Route: 048
     Dates: start: 20080204, end: 20080204
  2. METOPROLOL TARTRATE [Suspect]
     Dosage: (ONCE), ORAL
     Route: 048
     Dates: start: 20080204, end: 20080204
  3. SALBUTAMOL [Suspect]
     Dosage: (ONCE), ORAL
     Route: 048
     Dates: start: 20080204, end: 20080204
  4. TRAMADOL HCL [Suspect]
     Dosage: (ONCE), ORAL
     Route: 048
     Dates: start: 20080204, end: 20080204
  5. TRIMIPRAMIN BETA (100 MILLIGRAM) [Suspect]
     Dosage: (ONCE), ORAL
     Route: 048
     Dates: start: 20080204, end: 20080204

REACTIONS (7)
  - CARDIAC ARREST [None]
  - CONVULSION [None]
  - GASTRIC HAEMORRHAGE [None]
  - HAEMODIALYSIS [None]
  - HYPOXIA [None]
  - INTENTIONAL OVERDOSE [None]
  - SUICIDE ATTEMPT [None]
